FAERS Safety Report 6031712-4 (Version None)
Quarter: 2009Q1

REPORT INFORMATION
  Report Type: 
  Country: None (occurrence: None)
  Receive Date: 20090108
  Receipt Date: 20090107
  Transmission Date: 20090719
  Serious: Yes (Life-Threatening, Hospitalization)
  Sender: FDA-Public Use
  Company Number: B0544770A

PATIENT
  Age: 61 Year
  Sex: Male
  Weight: 80 kg

DRUGS (1)
  1. CEFUROXIME [Suspect]
     Indication: PERIODONTITIS
     Dosage: 250MG SINGLE DOSE
     Route: 048
     Dates: start: 20080917

REACTIONS (11)
  - ABDOMINAL DISCOMFORT [None]
  - ANAPHYLACTIC SHOCK [None]
  - BLOOD PRESSURE DECREASED [None]
  - DIARRHOEA [None]
  - ERYTHEMA [None]
  - FEELING HOT [None]
  - HEART RATE [None]
  - LOSS OF CONSCIOUSNESS [None]
  - SUPRAVENTRICULAR TACHYCARDIA [None]
  - TACHYCARDIA [None]
  - VOMITING [None]
